FAERS Safety Report 6142066-7 (Version None)
Quarter: 2009Q2

REPORT INFORMATION
  Report Type: 
  Country: None (occurrence: None)
  Receive Date: 20090402
  Receipt Date: 20090401
  Transmission Date: 20091009
  Serious: Yes (Death)
  Sender: FDA-Public Use
  Company Number: PH-WYE-H08661909

PATIENT
  Age: 75 Year
  Sex: Male

DRUGS (4)
  1. TYGACIL [Suspect]
     Indication: SEPSIS
     Dosage: UNKNOWN
     Route: 042
  2. LINEZOLID [Concomitant]
  3. ASPIRIN [Concomitant]
  4. VANCOMYCIN HCL [Concomitant]

REACTIONS (1)
  - DEATH [None]
